FAERS Safety Report 15836715 (Version 4)
Quarter: 2021Q2

REPORT INFORMATION
  Report Type: Report from Study
  Country: CN (occurrence: CN)
  Receive Date: 20190117
  Receipt Date: 20210503
  Transmission Date: 20210716
  Serious: Yes (Hospitalization)
  Sender: FDA-Public Use
  Company Number: CN-ROCHE-2243547

PATIENT
  Age: 66 Year
  Sex: Female
  Weight: 55 kg

DRUGS (9)
  1. ESTAZOLAM. [Concomitant]
     Active Substance: ESTAZOLAM
     Indication: INSOMNIA
     Dates: start: 201704
  2. RECOMBINANT HUMAN INTERLEUKIN?11 [Concomitant]
     Active Substance: OPRELVEKIN
     Dates: start: 20181217, end: 20181217
  3. RECOMBINANT HUMAN INTERLEUKIN?11 [Concomitant]
     Active Substance: OPRELVEKIN
     Dates: start: 20181219, end: 20181219
  4. RECOMBINANT HUMAN INTERLEUKIN?11 [Concomitant]
     Active Substance: OPRELVEKIN
     Indication: THROMBOCYTOPENIA
     Dates: start: 20181210, end: 20181213
  5. DIAMMONIUM GLYCYRRHIZINATE [Concomitant]
     Active Substance: HERBALS\DIAMMONIUM GLYCYRRHIZINATE
     Dates: start: 20180511
  6. RECOMBINANT HUMAN INTERLEUKIN?11 [Concomitant]
     Active Substance: OPRELVEKIN
     Dates: start: 20181121, end: 20181221
  7. RECOMBINANT HUMAN GRANULOCYTE STIMULATING FACTOR (UNK INGREDIENTS) [Concomitant]
     Indication: NEUTROPENIA
     Dates: start: 20181215, end: 20181215
  8. RECOMBINANT HUMAN GRANULOCYTE STIMULATING FACTOR (UNK INGREDIENTS) [Concomitant]
     Dates: start: 20190105, end: 20190105
  9. TRASTUZUMAB EMTANSINE [Suspect]
     Active Substance: ADO-TRASTUZUMAB EMTANSINE
     Indication: BREAST CANCER
     Dosage: ON DAY 1 OF EACH 21?DAY CYCLE.?DATE OF MOST RECENT DOSE OF TRASTUZUMAB EMTANSINE ADMINISTERED PRIOR
     Route: 042
     Dates: start: 20171117

REACTIONS (1)
  - Asthma [Recovered/Resolved]

NARRATIVE: CASE EVENT DATE: 20181224
